FAERS Safety Report 6859388-4 (Version None)
Quarter: 2010Q3

REPORT INFORMATION
  Report Type: 
  Country: None (occurrence: None)
  Receive Date: 20100719
  Receipt Date: 20080226
  Transmission Date: 20110219
  Serious: Yes (Other)
  Sender: FDA-Public Use
  Company Number: US-PFIZER INC-2008019680

PATIENT
  Sex: Female
  Weight: 90.7 kg

DRUGS (2)
  1. CHANTIX [Suspect]
     Indication: SMOKING CESSATION THERAPY
     Dates: start: 20070201
  2. XANAX [Concomitant]

REACTIONS (4)
  - ABNORMAL DREAMS [None]
  - AGITATION [None]
  - MENTAL STATUS CHANGES [None]
  - WEIGHT INCREASED [None]
